FAERS Safety Report 23831106 (Version 1)
Quarter: 2024Q2

REPORT INFORMATION
  Report Type: Spontaneous
  Country: US (occurrence: US)
  Receive Date: 20240508
  Receipt Date: 20240508
  Transmission Date: 20240715
  Serious: Yes (Hospitalization, Other)
  Sender: FDA-Public Use
  Company Number: US-SUN PHARMACEUTICAL INDUSTRIES LTD-2024R1-444676

PATIENT

DRUGS (1)
  1. METOPROLOL [Suspect]
     Active Substance: METOPROLOL
     Indication: Product used for unknown indication
     Dosage: 25 MILLIGRAM, BID
     Route: 048

REACTIONS (5)
  - Cardiac failure acute [Unknown]
  - Atypical pneumonia [Unknown]
  - Cardiomyopathy [Unknown]
  - Hypoxia [Unknown]
  - Vomiting [Unknown]

NARRATIVE: CASE EVENT DATE: 20240221
